FAERS Safety Report 15736307 (Version 1)
Quarter: 2018Q4

REPORT INFORMATION
  Report Type: Spontaneous
  Country: US (occurrence: US)
  Receive Date: 20181218
  Receipt Date: 20181218
  Transmission Date: 20190205
  Serious: Yes (Hospitalization)
  Sender: FDA-Public Use
  Company Number: US-MYLANLABS-2018M1092122

PATIENT
  Age: 15 Month
  Sex: Male

DRUGS (1)
  1. AMFETAMINE/DEXAMFETAMINE [Suspect]
     Active Substance: AMPHETAMINE SULFATE\DEXTROAMPHETAMINE
     Indication: PRODUCT USED FOR UNKNOWN INDICATION
     Route: 048

REACTIONS (4)
  - Sinus tachycardia [Recovering/Resolving]
  - Hallucination [Recovering/Resolving]
  - Accidental exposure to product [Recovering/Resolving]
  - Metabolic acidosis [Recovering/Resolving]
